FAERS Safety Report 6051339-8 (Version None)
Quarter: 2009Q1

REPORT INFORMATION
  Report Type: 
  Country: None (occurrence: None)
  Receive Date: 20090121
  Receipt Date: 20090102
  Transmission Date: 20090719
  Serious: Yes (Other)
  Sender: FDA-Public Use
  Company Number: 2009AL000257

PATIENT
  Age: 61 Year
  Sex: Female

DRUGS (6)
  1. MIRTAZAPINE [Suspect]
     Indication: PSYCHOTIC DISORDER
     Dosage: 15 MG;PO
     Route: 048
     Dates: start: 20081212, end: 20081216
  2. OLANZAPINE [Concomitant]
  3. PHENYTOIN [Concomitant]
  4. LEVETIRACETAM [Concomitant]
  5. THIAMINE HCL [Concomitant]
  6. LEVOTHYROXINE BP [Concomitant]

REACTIONS (4)
  - LYMPHOCYTE COUNT DECREASED [None]
  - NEUTROPHIL COUNT DECREASED [None]
  - PLATELET COUNT DECREASED [None]
  - WHITE BLOOD CELL COUNT DECREASED [None]
